FAERS Safety Report 7601553-2 (Version None)
Quarter: 2011Q3

REPORT INFORMATION
  Report Type: 
  Country: None (occurrence: None)
  Receive Date: 20110711
  Receipt Date: 20110628
  Transmission Date: 20111222
  Serious: Yes (Other)
  Sender: FDA-Public Use
  Company Number: PHHY2011US58301

PATIENT
  Age: 60 Year
  Sex: Female

DRUGS (4)
  1. RECLAST [Suspect]
     Route: 042
  2. ZOLOFT [Concomitant]
  3. CLOZAPINE [Concomitant]
  4. LAMICTAL [Concomitant]

REACTIONS (5)
  - ARTHRALGIA [None]
  - GAIT DISTURBANCE [None]
  - MEMORY IMPAIRMENT [None]
  - PAIN IN EXTREMITY [None]
  - DISCOMFORT [None]
